FAERS Safety Report 10171385 (Version 1)
Quarter: 2014Q2

REPORT INFORMATION
  Report Type: Spontaneous
  Country: US (occurrence: FR)
  Receive Date: 20140514
  Receipt Date: 20140514
  Transmission Date: 20141212
  Serious: Yes (Hospitalization)
  Sender: FDA-Public Use
  Company Number: 2014SP002609

PATIENT
  Age: 35 Year
  Sex: Female

DRUGS (16)
  1. DOXORUBICIN [Suspect]
     Indication: PRIMARY MEDIASTINAL LARGE B-CELL LYMPHOMA
     Dates: start: 201401, end: 20140217
  2. METHOTREXATE [Suspect]
     Indication: PRIMARY MEDIASTINAL LARGE B-CELL LYMPHOMA
     Route: 037
     Dates: start: 201401, end: 20140217
  3. PREDNISOLONE [Suspect]
     Indication: PRIMARY MEDIASTINAL LARGE B-CELL LYMPHOMA
     Dates: start: 201401, end: 20140217
  4. SOLU-MEDROL [Suspect]
     Indication: PRIMARY MEDIASTINAL LARGE B-CELL LYMPHOMA
     Dates: start: 201401, end: 20140217
  5. CYCLOPHOSPHAMIDE [Suspect]
     Indication: PRIMARY MEDIASTINAL LARGE B-CELL LYMPHOMA
     Dates: start: 201401, end: 20140217
  6. RITUXIMAB [Suspect]
     Indication: PRIMARY MEDIASTINAL LARGE B-CELL LYMPHOMA
     Dates: start: 201401, end: 20140217
  7. VINDESINE SULFATE [Suspect]
     Indication: PRIMARY MEDIASTINAL LARGE B-CELL LYMPHOMA
     Dates: start: 201401, end: 20140217
  8. BLEOMYCIN [Suspect]
     Dates: start: 201401, end: 20140217
  9. ZELITREX [Concomitant]
     Route: 048
  10. LEDERFOLIN [Concomitant]
     Route: 048
  11. SULFAMETHOXAZOLE [Concomitant]
     Route: 048
  12. TRIMETHOPRIM [Concomitant]
     Route: 048
  13. INNOHEP [Concomitant]
     Route: 058
  14. DAFALGAN [Concomitant]
     Indication: PAIN
     Route: 048
  15. ALLOPURINOL [Concomitant]
     Route: 048
  16. LYSANXIA [Concomitant]
     Route: 048

REACTIONS (7)
  - Mallory-Weiss syndrome [Recovered/Resolved with Sequelae]
  - Haematemesis [Recovered/Resolved with Sequelae]
  - Melaena [Recovered/Resolved with Sequelae]
  - Nausea [Unknown]
  - Vomiting [Recovered/Resolved with Sequelae]
  - Anaemia [Unknown]
  - Hypokalaemia [Unknown]
